FAERS Safety Report 6049980-1 (Version None)
Quarter: 2009Q1

REPORT INFORMATION
  Report Type: 
  Country: None (occurrence: None)
  Receive Date: 20090121
  Receipt Date: 20081119
  Transmission Date: 20090719
  Serious: Yes (Congenital Anomaly)
  Sender: FDA-Public Use
  Company Number: 8039789

PATIENT

DRUGS (1)
  1. KEPPRA [Suspect]

REACTIONS (11)
  - ANAL FISTULA [None]
  - ANORECTAL DISORDER [None]
  - CRANIAL NERVE DISORDER [None]
  - DEFORMITY [None]
  - EXOSTOSIS [None]
  - KIDNEY MALFORMATION [None]
  - MATERNAL DRUGS AFFECTING FOETUS [None]
  - OESOPHAGEAL DISORDER [None]
  - RENAL FUSION ANOMALY [None]
  - SPINAL DEFORMITY [None]
  - VACTERL SYNDROME [None]
